FAERS Safety Report 19390602 (Version 1)
Quarter: 2021Q2

REPORT INFORMATION
  Report Type: Spontaneous
  Country: US (occurrence: US)
  Receive Date: 20210608
  Receipt Date: 20210608
  Transmission Date: 20210717
  Serious: No
  Sender: FDA-Public Use
  Company Number: US-IGSA-BIG0011035

PATIENT
  Age: 43 Year
  Sex: Female

DRUGS (2)
  1. RABIES VACCINE [Concomitant]
     Active Substance: RABIES VACCINE
     Indication: RABIES IMMUNISATION
     Dosage: UNK
     Route: 030
     Dates: start: 20200814, end: 20200814
  2. HYPERRAB S/D [Suspect]
     Active Substance: HUMAN RABIES VIRUS IMMUNE GLOBULIN
     Indication: PROPHYLAXIS
     Dosage: UNK
     Route: 030
     Dates: start: 20200813, end: 20200813

REACTIONS (2)
  - Paraesthesia [Unknown]
  - Crepitations [Unknown]

NARRATIVE: CASE EVENT DATE: 20200814
